FAERS Safety Report 5514197-3 (Version None)
Quarter: 2007Q4

REPORT INFORMATION
  Report Type: 
  Country: None (occurrence: None)
  Receive Date: 20071113
  Receipt Date: 20071106
  Transmission Date: 20080405
  Serious: Yes (Other)
  Sender: FDA-Public Use
  Company Number: US-BAYER-200713399BCC

PATIENT
  Age: 50 Year
  Sex: Female
  Weight: 58 kg

DRUGS (4)
  1. ASPIRIN [Suspect]
     Indication: NASOPHARYNGITIS
     Route: 048
  2. ASPIRIN [Suspect]
     Route: 048
     Dates: start: 20071001
  3. IMIPRAMINE [Concomitant]
  4. ALPRAZOLAM [Concomitant]

REACTIONS (1)
  - COAGULOPATHY [None]
